FAERS Safety Report 26216030 (Version 1)
Quarter: 2025Q4

REPORT INFORMATION
  Report Type: Spontaneous
  Country: JP (occurrence: JP)
  Receive Date: 20251231
  Receipt Date: 20251231
  Transmission Date: 20260119
  Serious: Yes (Other)
  Sender: UCB
  Company Number: JP-UCBJ-CD202508295UCBPHAPROD

PATIENT
  Age: 25 Year
  Weight: 46 kg

DRUGS (1)
  1. FINTEPLA [Suspect]
     Active Substance: FENFLURAMINE
     Indication: Lennox-Gastaut syndrome
     Dosage: UNK
     Route: 061

REACTIONS (4)
  - Epilepsy [Unknown]
  - Somnolence [Unknown]
  - Weight decreased [Unknown]
  - Therapeutic response decreased [Unknown]
